FAERS Safety Report 6608612-1 (Version None)
Quarter: 2010Q1

REPORT INFORMATION
  Report Type: 
  Country: None (occurrence: None)
  Receive Date: 20100301
  Receipt Date: 20100225
  Transmission Date: 20100710
  Serious: Yes (Death, Life-Threatening, Hospitalization, Other)
  Sender: FDA-Public Use
  Company Number: US-GENENTECH-296214

PATIENT
  Sex: Male
  Weight: 11.3 kg

DRUGS (11)
  1. RITUXAN [Suspect]
     Indication: ENCEPHALITIS
     Dosage: 750 MG/M2, Q2W
     Route: 041
     Dates: start: 20081226
  2. ACTH [Suspect]
     Indication: DRUG USE FOR UNKNOWN INDICATION
     Dosage: 25 IU/M2, QOD
     Route: 030
     Dates: start: 20090813
  3. IMMUNE GLOBULIN INTRAVENOUS (HUMAN) [Concomitant]
     Indication: DRUG USE FOR UNKNOWN INDICATION
     Dosage: UNK
     Dates: start: 20080909
  4. CLONIDINE [Concomitant]
     Indication: DRUG USE FOR UNKNOWN INDICATION
     Dosage: 0.5 MG, TID
  5. AMLODIPINE [Concomitant]
     Indication: DRUG USE FOR UNKNOWN INDICATION
     Dosage: 3 MG, BID
  6. CALCIUM CARBONATE [Concomitant]
     Indication: DRUG USE FOR UNKNOWN INDICATION
     Dosage: 750 MG, BID
  7. CAPTOPRIL [Concomitant]
     Indication: DRUG USE FOR UNKNOWN INDICATION
     Dosage: 6.5 MG, BID
  8. CAPTOPRIL [Concomitant]
     Dosage: 10 MG, QHS
  9. NIFEDIPINE [Concomitant]
     Indication: DRUG USE FOR UNKNOWN INDICATION
     Dosage: 3.5 MG, PRN
  10. BACTRIM [Concomitant]
     Indication: DRUG USE FOR UNKNOWN INDICATION
  11. PENTAMIDINE ISETHIONATE [Concomitant]
     Indication: DRUG USE FOR UNKNOWN INDICATION
     Dosage: UNK
     Dates: start: 20091029

REACTIONS (2)
  - APLASTIC ANAEMIA [None]
  - SEPSIS [None]
